FAERS Safety Report 4756684-1 (Version None)
Quarter: 2005Q3

REPORT INFORMATION
  Report Type: 
  Country: None (occurrence: None)
  Receive Date: 20050830
  Receipt Date: 20050825
  Transmission Date: 20060218
  Serious: Yes (Hospitalization)
  Sender: FDA-Public Use
  Company Number: FR-GLAXOSMITHKLINE-B0391873A

PATIENT
  Age: 33 Year
  Sex: Male

DRUGS (11)
  1. CEFUROXIME AXETIL [Suspect]
     Dosage: 500MG PER DAY
     Route: 048
     Dates: end: 20050803
  2. LEXOMIL [Suspect]
     Dosage: .5UNIT PER DAY
     Route: 048
     Dates: start: 20050708, end: 20050803
  3. CIFLOX [Suspect]
     Dosage: 1000MG PER DAY
     Route: 048
     Dates: end: 20050803
  4. VFEND [Suspect]
     Dosage: 2UNIT PER DAY
     Route: 048
     Dates: start: 20050708, end: 20050803
  5. VALGANCYCLOVIR [Suspect]
     Dosage: 2UNIT PER DAY
     Route: 048
     Dates: end: 20050728
  6. LASILIX [Suspect]
     Dosage: 20MG PER DAY
     Route: 048
     Dates: end: 20050803
  7. ZELITREX [Concomitant]
     Route: 065
  8. CORTANCYL [Concomitant]
     Route: 065
  9. CELLCEPT [Concomitant]
     Route: 065
  10. NEORAL [Concomitant]
     Route: 065
  11. NEXIUM [Concomitant]
     Route: 065

REACTIONS (1)
  - ATRIAL FLUTTER [None]
